FAERS Safety Report 22635953 (Version 1)
Quarter: 2023Q2

REPORT INFORMATION
  Report Type: Spontaneous
  Country: FR (occurrence: FR)
  Receive Date: 20230623
  Receipt Date: 20230623
  Transmission Date: 20230721
  Serious: Yes (Death)
  Sender: FDA-Public Use
  Company Number: None

PATIENT

DRUGS (2)
  1. METHOTREXATE [Suspect]
     Active Substance: METHOTREXATE
     Indication: Product used for unknown indication
     Route: 064
     Dates: start: 202107, end: 202206
  2. TILDRAKIZUMAB [Suspect]
     Active Substance: TILDRAKIZUMAB
     Indication: Product used for unknown indication
     Dosage: INJECTION PERFORMED IN THE FATHER OF THE FETUS: INJECTION S0, AT 4 WEEKS S4 THEN EVERY 12 WEEKS
     Route: 065
     Dates: start: 202208

REACTIONS (2)
  - Trisomy 21 [Fatal]
  - Exposure via father [Fatal]

NARRATIVE: CASE EVENT DATE: 20220901
